FAERS Safety Report 9296053 (Version 1)
Quarter: 2013Q2

REPORT INFORMATION
  Report Type: Spontaneous
  Country: MY (occurrence: MY)
  Receive Date: 20130517
  Receipt Date: 20130517
  Transmission Date: 20140414
  Serious: Yes (Other)
  Sender: FDA-Public Use
  Company Number: MY-SANOFI-AVENTIS-2013SA049711

PATIENT
  Age: 60 Year
  Sex: Male

DRUGS (4)
  1. ELOXATIN [Suspect]
     Indication: COLON CANCER
     Route: 042
     Dates: start: 201202, end: 201202
  2. 5-FU [Concomitant]
  3. ONDANSETRON [Concomitant]
  4. FOLINIC ACID [Concomitant]

REACTIONS (2)
  - Orbital oedema [Recovered/Resolved]
  - Pruritus [Recovered/Resolved]
